FAERS Safety Report 20210934 (Version 1)
Quarter: 2021Q4

REPORT INFORMATION
  Report Type: Spontaneous
  Country: US (occurrence: None)
  Receive Date: 20211220
  Receipt Date: 20211220
  Transmission Date: 20220303
  Serious: Yes (Hospitalization)
  Sender: FDA-Public Use
  Company Number: None

PATIENT
  Age: 60 Year
  Sex: Male

DRUGS (1)
  1. SEROSTIM [Suspect]
     Active Substance: SOMATROPIN
     Indication: HIV infection
     Dosage: FREQUENCY : AT BEDTIME;?
     Route: 058
     Dates: start: 201812

REACTIONS (2)
  - Cholelithiasis [None]
  - Therapy interrupted [None]

NARRATIVE: CASE EVENT DATE: 20211116
